FAERS Safety Report 7565331-5 (Version None)
Quarter: 2011Q2

REPORT INFORMATION
  Report Type: 
  Country: None (occurrence: None)
  Receive Date: 20110623
  Receipt Date: 20110615
  Transmission Date: 20111010
  Serious: Yes (Hospitalization)
  Sender: FDA-Public Use
  Company Number: US-BIOGENIDEC-2010BI035667

PATIENT
  Sex: Female

DRUGS (1)
  1. AVONEX [Suspect]
     Indication: MULTIPLE SCLEROSIS
     Route: 030
     Dates: start: 19990815

REACTIONS (6)
  - SCOLIOSIS [None]
  - MYOCARDIAL INFARCTION [None]
  - SPINAL COLUMN STENOSIS [None]
  - CORONARY ARTERY DISEASE [None]
  - ACUTE RESPIRATORY DISTRESS SYNDROME [None]
  - ANTIBODY TEST POSITIVE [None]
